FAERS Safety Report 6448030-2 (Version None)
Quarter: 2009Q4

REPORT INFORMATION
  Report Type: 
  Country: None (occurrence: None)
  Receive Date: 20091120
  Receipt Date: 20091111
  Transmission Date: 20100525
  Serious: Yes (Hospitalization)
  Sender: FDA-Public Use
  Company Number: AT-AMGEN-UK366716

PATIENT
  Sex: Female

DRUGS (4)
  1. ARANESP [Suspect]
     Indication: RENAL FAILURE CHRONIC
     Route: 042
     Dates: start: 20081102, end: 20081105
  2. DARBEPOETIN ALFA - STUDY PROCEDURE [Suspect]
  3. BLOOD, WHOLE [Concomitant]
     Dates: start: 20081027
  4. AMLODIPINE [Concomitant]
     Route: 065

REACTIONS (1)
  - BLINDNESS [None]
